FAERS Safety Report 17643993 (Version 1)
Quarter: 2020Q2

REPORT INFORMATION
  Report Type: Spontaneous
  Country: CN (occurrence: CN)
  Receive Date: 20200408
  Receipt Date: 20200408
  Transmission Date: 20200713
  Serious: Yes (Life-Threatening, Hospitalization, Other)
  Sender: FDA-Public Use
  Company Number: CN-LEADINGPHARMA-CN-2020LEALIT00053

PATIENT
  Age: 71 Year
  Sex: Male

DRUGS (5)
  1. SOLUTIO RINGER LACTATE [Interacting]
     Active Substance: CALCIUM CHLORIDE\POTASSIUM CHLORIDE\SODIUM LACTATE
     Indication: BLOOD VOLUME EXPANSION
     Route: 042
  2. ESMOLOL [Interacting]
     Active Substance: ESMOLOL HYDROCHLORIDE
     Indication: LEFT VENTRICULAR DYSFUNCTION
     Route: 042
  3. FUROSEMIDE TABLETS USP [Suspect]
     Active Substance: FUROSEMIDE
     Indication: ACUTE PULMONARY OEDEMA
     Route: 042
  4. PROPOFOL. [Interacting]
     Active Substance: PROPOFOL
     Indication: STRESS
     Route: 065
  5. ESMOLOL [Interacting]
     Active Substance: ESMOLOL HYDROCHLORIDE
     Indication: ISCHAEMIC CONTRACTURE OF THE LEFT VENTRICLE

REACTIONS (6)
  - Left ventricular dysfunction [Recovering/Resolving]
  - Hypoxia [Recovering/Resolving]
  - Hyperdynamic left ventricle [Recovering/Resolving]
  - Hypovolaemia [Recovering/Resolving]
  - Pulmonary oedema [Recovering/Resolving]
  - Condition aggravated [Recovering/Resolving]
